FAERS Safety Report 8208205 (Version 7)
Quarter: 2013Q1

REPORT INFORMATION
  Report Type: Report from Study
  Country: US (occurrence: US)
  Receive Date: 20111028
  Receipt Date: 20130117
  Transmission Date: 20140127
  Serious: Yes (Hospitalization)
  Sender: FDA-Public Use
  Company Number: US-BRISTOL-MYERS SQUIBB COMPANY-16188823

PATIENT
  Age: 71 Year
  Sex: Male
  Weight: 92.5 kg

DRUGS (16)
  1. IPILIMUMAB [Suspect]
     Indication: MALIGNANT MELANOMA
     Dosage: LAST DOSE: 29NOV12:911MG
     Route: 042
     Dates: start: 20110802
  2. LEUKINE [Suspect]
     Indication: MALIGNANT MELANOMA
     Dosage: 250 MCG/DAY DAYS 1-14?TOTAL DOSING C4: 3500 MG?18OCT11
     Route: 058
     Dates: start: 20110802, end: 20111107
  3. SIMVASTATIN [Suspect]
     Dosage: 20MG TABS?EVERY 4 HOURS AS NEEDED
     Route: 048
  4. LORAZEPAM [Concomitant]
     Indication: INSOMNIA
     Dosage: FREQ:PRN.
     Route: 048
  5. LORAZEPAM [Concomitant]
     Indication: ANXIETY
     Dosage: FREQ:PRN.
     Route: 048
  6. CLOBETASOL PROPIONATE [Concomitant]
     Dosage: 1 DF = 0.05% LOTION 1 APPLICATION TO BID
     Route: 061
  7. OMEPRAZOLE [Concomitant]
     Route: 048
  8. HYDROMORPHONE [Concomitant]
     Indication: PAIN
     Route: 048
  9. ACETYLSALICYLIC ACID [Concomitant]
     Route: 048
  10. METOPROLOL [Concomitant]
     Route: 048
  11. OXYCODONE [Concomitant]
     Indication: PAIN
     Route: 048
  12. PREDNISONE [Concomitant]
     Route: 048
  13. SOLU-CORTEF [Concomitant]
     Route: 030
  14. ZOLPIDEM [Concomitant]
  15. ZOLPIDEM TARTRATE [Concomitant]
     Indication: INSOMNIA
     Route: 048
  16. AMLODIPINE [Concomitant]
     Route: 048

REACTIONS (8)
  - Enterocolitis [Not Recovered/Not Resolved]
  - Abdominal pain [Recovered/Resolved with Sequelae]
  - Transaminases increased [Recovered/Resolved with Sequelae]
  - Alanine aminotransferase increased [Recovered/Resolved with Sequelae]
  - Aspartate aminotransferase increased [Recovered/Resolved with Sequelae]
  - Sinus tachycardia [Not Recovered/Not Resolved]
  - Dyspnoea [Unknown]
  - Chest pain [Recovered/Resolved with Sequelae]
